FAERS Safety Report 5752470-4 (Version None)
Quarter: 2008Q2

REPORT INFORMATION
  Report Type: 
  Country: None (occurrence: None)
  Receive Date: 20080529
  Receipt Date: 20080524
  Transmission Date: 20081010
  Serious: Yes (Hospitalization)
  Sender: FDA-Public Use
  Company Number: US-BRISTOL-MYERS SQUIBB COMPANY-14206122

PATIENT
  Age: 45 Year
  Sex: Male
  Weight: 76 kg

DRUGS (6)
  1. ERBITUX [Suspect]
     Indication: COLON CANCER
     Dosage: FIRST INFUSION GIVEN ON 29-JAN-2008.
     Route: 042
     Dates: start: 20080423, end: 20080423
  2. FLUOROURACIL [Suspect]
     Indication: COLON CANCER
     Dosage: FIRST INFUSION GIVEN ON 29-JAN-2008.
     Route: 042
     Dates: start: 20080423, end: 20080423
  3. LEUCOVORIN CALCIUM [Suspect]
     Indication: COLON CANCER
     Dosage: FIRST INFUSION GIVEN ON 29-JAN-2008.
     Route: 042
     Dates: start: 20080423, end: 20080423
  4. ELOXATIN [Suspect]
     Indication: COLON CANCER
     Dosage: FIRST INFUSION GIVEN ON 29-JAN-2008.
     Route: 042
     Dates: start: 20080423, end: 20080423
  5. DECADRON [Concomitant]
  6. DILANTIN [Concomitant]

REACTIONS (5)
  - BACK PAIN [None]
  - DIARRHOEA [None]
  - GASTRITIS [None]
  - HYPERAMYLASAEMIA [None]
  - VOMITING [None]
